FAERS Safety Report 7073371-8 (Version None)
Quarter: 2010Q4

REPORT INFORMATION
  Report Type: 
  Country: None (occurrence: None)
  Receive Date: 20101029
  Receipt Date: 20101018
  Transmission Date: 20110411
  Serious: Yes (Life-Threatening, Hospitalization)
  Sender: FDA-Public Use
  Company Number: CA-ELI_LILLY_AND_COMPANY-CA201010003802

PATIENT
  Sex: Female

DRUGS (7)
  1. ZYPREXA [Suspect]
     Dosage: UNK, UNK
     Dates: start: 20020904
  2. PARIET [Concomitant]
     Dosage: 20 MG, DAILY (1/D)
     Route: 048
  3. MIRTAZAPINE [Concomitant]
     Dosage: 45 MG, DAILY (1/D)
     Route: 048
  4. LOVASTATIN [Concomitant]
     Dosage: 20 MG, DAILY (1/D)
     Route: 048
  5. LORAZEPAM [Concomitant]
     Dosage: 1 MG, EACH EVENING
     Route: 048
  6. IBUPROFEN [Concomitant]
     Dosage: 1 D/F, AS NEEDED
  7. TYLENOL W/ CODEINE NO. 3 [Concomitant]
     Dosage: 1 D/F, AS NEEDED

REACTIONS (7)
  - CLOSTRIDIAL INFECTION [None]
  - DYSGEUSIA [None]
  - FATIGUE [None]
  - HYPOPHAGIA [None]
  - NAUSEA [None]
  - NECROSIS [None]
  - PANCREATITIS ACUTE [None]
